FAERS Safety Report 14740198 (Version 1)
Quarter: 2018Q2

REPORT INFORMATION
  Report Type: Spontaneous
  Country: US (occurrence: US)
  Receive Date: 20180410
  Receipt Date: 20180410
  Transmission Date: 20180711
  Serious: No
  Sender: FDA-Public Use
  Company Number: US-TARO-2018TAR00241

PATIENT
  Age: 76 Year
  Sex: Male
  Weight: 124.72 kg

DRUGS (9)
  1. CLOBETASOL PROPIONATE (HI-TECH) [Suspect]
     Active Substance: CLOBETASOL PROPIONATE
     Indication: MYCOSIS FUNGOIDES
     Dosage: UNK UNK, 1X/DAY AT NIGHT
     Route: 061
     Dates: end: 20180317
  2. METOPROLOL. [Concomitant]
     Active Substance: METOPROLOL
  3. TAMSULOSIN [Concomitant]
     Active Substance: TAMSULOSIN
  4. FINASTERIDE. [Concomitant]
     Active Substance: FINASTERIDE
  5. TAZAROTENE CREAM 0.1% [Suspect]
     Active Substance: TAZAROTENE
     Indication: MYCOSIS FUNGOIDES
     Dosage: UNK
     Route: 061
  6. TAZAROTENE CREAM 0.1% [Suspect]
     Active Substance: TAZAROTENE
     Dosage: ^VERY THIN AMOUNT,^ 1X/DAY IN THE MORNING
     Route: 061
     Dates: start: 201803, end: 20180317
  7. INTERFERON [Concomitant]
     Active Substance: INTERFERON
     Dosage: 1.4 M, 3X/WEEK
  8. CLOPIDOGREL BISULFATE. [Concomitant]
     Active Substance: CLOPIDOGREL BISULFATE
  9. ATORVASTATIN [Concomitant]
     Active Substance: ATORVASTATIN

REACTIONS (6)
  - Skin texture abnormal [Not Recovered/Not Resolved]
  - Application site erythema [Recovering/Resolving]
  - Hyperhidrosis [Not Recovered/Not Resolved]
  - Off label use [Recovered/Resolved]
  - Application site pain [Recovered/Resolved]
  - Application site discomfort [Not Recovered/Not Resolved]

NARRATIVE: CASE EVENT DATE: 201803
